FAERS Safety Report 4406034-5 (Version None)
Quarter: 2004Q3

REPORT INFORMATION
  Report Type: 
  Country: None (occurrence: None)
  Receive Date: 20040723
  Receipt Date: 20040325
  Transmission Date: 20050211
  Serious: No
  Sender: FDA-Public Use
  Company Number: US-GLAXOSMITHKLINE-A0504560A

PATIENT
  Age: 61 Year
  Sex: Female

DRUGS (2)
  1. AVANDIA [Suspect]
     Dosage: 4MG PER DAY
     Route: 048
     Dates: start: 20030501, end: 20040309
  2. LIPITOR [Concomitant]

REACTIONS (4)
  - DYSPNOEA [None]
  - EYELID PTOSIS [None]
  - RESPIRATORY TRACT INFECTION [None]
  - SWELLING [None]
